FAERS Safety Report 9941621 (Version 2)
Quarter: 2014Q1

REPORT INFORMATION
  Report Type: Report from Study
  Country: US (occurrence: US)
  Receive Date: 20140303
  Receipt Date: 20140303
  Transmission Date: 20141002
  Serious: Yes (Other)
  Sender: FDA-Public Use
  Company Number: US-ABBVIE-12P-163-1004242-00

PATIENT
  Age: 42 Year
  Sex: Female
  Weight: 83.08 kg

DRUGS (9)
  1. HUMIRA [Suspect]
     Indication: RHEUMATOID ARTHRITIS
     Dosage: 2
     Route: 050
     Dates: start: 20121011
  2. HUMIRA [Suspect]
  3. AMLODIPINE [Concomitant]
     Indication: HYPERTENSION
  4. VENLAFAXINE HCL [Concomitant]
     Indication: DEPRESSION
  5. PREMARIN [Concomitant]
     Indication: PRODUCT USED FOR UNKNOWN INDICATION
  6. SULFASALAZINE [Concomitant]
     Indication: PRODUCT USED FOR UNKNOWN INDICATION
  7. TRAZODONE [Concomitant]
     Indication: PRODUCT USED FOR UNKNOWN INDICATION
  8. METHOTREXATE [Concomitant]
     Indication: PRODUCT USED FOR UNKNOWN INDICATION
  9. FOLIC ACID [Concomitant]
     Indication: PRODUCT USED FOR UNKNOWN INDICATION

REACTIONS (6)
  - Dehydration [Unknown]
  - Sinusitis [Unknown]
  - Thirst [Unknown]
  - Drug dose omission [Unknown]
  - Ear infection [Unknown]
  - Nausea [Unknown]
